FAERS Safety Report 5748388-3 (Version None)
Quarter: 2008Q2

REPORT INFORMATION
  Report Type: 
  Country: None (occurrence: None)
  Receive Date: 20080523
  Receipt Date: 20080513
  Transmission Date: 20081010
  Serious: Yes (Other)
  Sender: FDA-Public Use
  Company Number: US-PFIZER INC-2008035009

PATIENT
  Sex: Female
  Weight: 72.6 kg

DRUGS (12)
  1. CHANTIX [Suspect]
     Indication: SMOKING CESSATION THERAPY
     Route: 048
     Dates: start: 20080301, end: 20080509
  2. ADVAIR DISKUS 100/50 [Concomitant]
  3. MONTELUKAST SODIUM [Concomitant]
     Indication: EMPHYSEMA
  4. WELLBUTRIN [Concomitant]
     Indication: DEPRESSION
  5. TRAZODONE HCL [Concomitant]
     Indication: ANXIETY
  6. VALTREX [Concomitant]
  7. FENTANYL [Concomitant]
     Indication: PAIN
  8. PERCOCET [Concomitant]
     Indication: PAIN
  9. DETROL [Concomitant]
  10. LYRICA [Concomitant]
     Indication: FIBROMYALGIA
  11. PREMARIN [Concomitant]
     Indication: HORMONE REPLACEMENT THERAPY
  12. ALBUTEROL [Concomitant]
     Indication: ASTHMA

REACTIONS (3)
  - GASTROINTESTINAL DISORDER [None]
  - LOSS OF CONSCIOUSNESS [None]
  - SUICIDAL IDEATION [None]
